FAERS Safety Report 4938522-7 (Version None)
Quarter: 2006Q1

REPORT INFORMATION
  Report Type: 
  Country: None (occurrence: None)
  Receive Date: 20060302
  Receipt Date: 20060220
  Transmission Date: 20060701
  Serious: Yes (Hospitalization)
  Sender: FDA-Public Use
  Company Number: 2006026039

PATIENT
  Sex: Male

DRUGS (6)
  1. NIFEDIPINE [Suspect]
     Indication: HYPERTENSION
     Dosage: 30 MG (DAILY)
     Dates: end: 20060111
  2. NEORAL [Suspect]
     Indication: RENAL TRANSPLANT
     Dosage: 250 MG (DAILY)
     Dates: end: 20060112
  3. BISOPROLOL FUMARATE [Suspect]
     Indication: HYPERTENSION
     Dosage: 10 MG (DAILY)
     Dates: end: 20060112
  4. CELESTONE [Concomitant]
  5. PREDNISONE [Concomitant]
  6. CUROSURF (PHOSPHOLIPIDFRACTION, PORCINE LUNG, SODIUM CHLORIDE) [Concomitant]

REACTIONS (9)
  - DRUG EXPOSURE DURING PREGNANCY [None]
  - FOETAL GROWTH RETARDATION [None]
  - FOETAL HEART RATE DECREASED [None]
  - FOETAL MOVEMENTS DECREASED [None]
  - LEUKOPENIA NEONATAL [None]
  - MATERNAL CONDITION AFFECTING FOETUS [None]
  - PREMATURE BABY [None]
  - RENAL FAILURE NEONATAL [None]
  - THROMBOCYTOPENIA NEONATAL [None]
